FAERS Safety Report 6171551-7 (Version None)
Quarter: 2009Q2

REPORT INFORMATION
  Report Type: 
  Country: None (occurrence: None)
  Receive Date: 20090424
  Receipt Date: 20080304
  Transmission Date: 20091009
  Serious: Yes (Other)
  Sender: FDA-Public Use
  Company Number: WAES 0803USA00676

PATIENT
  Sex: Female

DRUGS (4)
  1. SINGULAIR [Suspect]
     Indication: ASTHMA
     Dosage: 5 MG/HS/PO
     Route: 047
     Dates: start: 20040301
  2. SINGULAIR [Suspect]
     Indication: RHINITIS
     Dosage: 5 MG/HS/PO
     Route: 047
     Dates: start: 20040301
  3. PULMICORT-100 [Concomitant]
  4. ZYRTEC [Concomitant]

REACTIONS (1)
  - CONVULSION [None]
